FAERS Safety Report 8536614-7 (Version None)
Quarter: 2012Q3

REPORT INFORMATION
  Report Type: 
  Country: None (occurrence: None)
  Receive Date: 20120718
  Receipt Date: 20120718
  Transmission Date: 20120928
  Serious: Yes (Other)
  Sender: FDA-Public Use
  Company Number: None

PATIENT
  Age: 42 Year
  Sex: Female

DRUGS (2)
  1. PERCOCET [Suspect]
     Indication: INTERVERTEBRAL DISC PROTRUSION
     Dosage: 1 TABLET 4-6 HRS PO
     Route: 048
     Dates: start: 20120713, end: 20120717
  2. LIDODERM [Suspect]
     Indication: INTERVERTEBRAL DISC PROTRUSION
     Dosage: 2 PATCHES 12 HRS TRANSDERMAL
     Route: 062
     Dates: start: 20090901, end: 20120717

REACTIONS (3)
  - HYPERHIDROSIS [None]
  - VOMITING [None]
  - DIZZINESS [None]
